FAERS Safety Report 8300113-8 (Version None)
Quarter: 2012Q2

REPORT INFORMATION
  Report Type: 
  Country: None (occurrence: None)
  Receive Date: 20120420
  Receipt Date: 20120417
  Transmission Date: 20120825
  Serious: No
  Sender: FDA-Public Use
  Company Number: US-PFIZER INC-2012095988

PATIENT
  Sex: Female

DRUGS (1)
  1. NEURONTIN [Suspect]
     Dosage: UNK,3X/DAY

REACTIONS (7)
  - SOMNOLENCE [None]
  - SPEECH DISORDER [None]
  - DIZZINESS [None]
  - DYSKINESIA [None]
  - AMNESIA [None]
  - COORDINATION ABNORMAL [None]
  - FATIGUE [None]
